FAERS Safety Report 5130563-2 (Version None)
Quarter: 2006Q4

REPORT INFORMATION
  Report Type: 
  Country: None (occurrence: None)
  Receive Date: 20061017
  Receipt Date: 20061017
  Transmission Date: 20070319
  Serious: Yes (Other)
  Sender: FDA-Public Use
  Company Number: None

PATIENT
  Age: 65 Year
  Sex: Female
  Weight: 74 kg

DRUGS (2)
  1. CEFAZOLIN [Suspect]
     Indication: STAPHYLOCOCCAL INFECTION
     Dates: start: 20060930, end: 20061013
  2. CEFAZOLIN [Suspect]

REACTIONS (2)
  - INFUSION SITE ERYTHEMA [None]
  - RASH MACULAR [None]
